FAERS Safety Report 21368542 (Version 3)
Quarter: 2022Q4

REPORT INFORMATION
  Report Type: Spontaneous
  Country: US (occurrence: US)
  Receive Date: 20220923
  Receipt Date: 20221115
  Transmission Date: 20230112
  Serious: No
  Sender: FDA-Public Use
  Company Number: US-SA-SAC20220919000547

PATIENT
  Age: 61 Year
  Sex: Male
  Weight: 86.621 kg

DRUGS (14)
  1. DUPIXENT [Suspect]
     Active Substance: DUPILUMAB
     Indication: Dermatitis atopic
     Dosage: 300 MG, QOW
     Route: 058
  2. DUPIXENT [Suspect]
     Active Substance: DUPILUMAB
     Indication: Folliculitis
  3. LIDOCAINE [Concomitant]
     Active Substance: LIDOCAINE
  4. MELOXICAM [Concomitant]
     Active Substance: MELOXICAM
  5. MS CONTIN [Concomitant]
     Active Substance: MORPHINE SULFATE
  6. MUPIROCIN [Concomitant]
     Active Substance: MUPIROCIN
  7. NEURONTIN [Concomitant]
     Active Substance: GABAPENTIN
  8. OXYCODONE HYDROCHLORIDE [Concomitant]
     Active Substance: OXYCODONE HYDROCHLORIDE
  9. PROCTOZONE HC [Concomitant]
     Active Substance: HYDROCORTISONE
  10. VALIUM [Concomitant]
     Active Substance: DIAZEPAM
  11. TIGER BALM [CAMPHOR;EUCALYPTUS GLOBULUS OIL;MENTHOL;SYZYGIUM AROMATICU [Concomitant]
  12. ASPIRIN [Concomitant]
     Active Substance: ASPIRIN
  13. HALOBETASOL PROPIONATE [Concomitant]
     Active Substance: HALOBETASOL PROPIONATE
     Dosage: UNK
  14. HYDROXYZINE HYDROCHLORIDE [Concomitant]
     Active Substance: HYDROXYZINE HYDROCHLORIDE
     Dosage: UNK

REACTIONS (21)
  - Hypoaesthesia [Unknown]
  - Memory impairment [Unknown]
  - Headache [Unknown]
  - Concussion [Recovered/Resolved]
  - Road traffic accident [Recovered/Resolved]
  - Illness [Unknown]
  - Skin swelling [Not Recovered/Not Resolved]
  - Acne [Not Recovered/Not Resolved]
  - Localised infection [Unknown]
  - Peripheral swelling [Not Recovered/Not Resolved]
  - Pain [Not Recovered/Not Resolved]
  - Blister [Unknown]
  - Skin ulcer [Unknown]
  - Skin irritation [Unknown]
  - Wound complication [Unknown]
  - Burning sensation [Unknown]
  - Hypersensitivity [Unknown]
  - Skin exfoliation [Unknown]
  - Condition aggravated [Unknown]
  - Rash [Unknown]
  - Product use in unapproved indication [Unknown]

NARRATIVE: CASE EVENT DATE: 20220101
